FAERS Safety Report 4299914-5 (Version None)
Quarter: 2004Q1

REPORT INFORMATION
  Report Type: 
  Country: None (occurrence: None)
  Receive Date: 20040218
  Receipt Date: 20040204
  Transmission Date: 20041129
  Serious: Yes (Death)
  Sender: FDA-Public Use
  Company Number: BE-JNJFOC-20040200117

PATIENT
  Age: 58 Year
  Sex: Male

DRUGS (1)
  1. CISAPRIDE (CISAPRIDE) TABLETS [Suspect]
     Indication: DIABETIC GASTROPARESIS
     Dosage: 10 MG, 4 IN 1 DAY
     Dates: start: 20030724

REACTIONS (4)
  - CARDIAC FAILURE [None]
  - MYOCARDIAL INFARCTION [None]
  - PULMONARY OEDEMA [None]
  - RESPIRATORY FAILURE [None]
